FAERS Safety Report 8892198 (Version 2)
Quarter: 2012Q4

REPORT INFORMATION
  Report Type: Report from Study
  Country: US (occurrence: US)
  Receive Date: 20121107
  Receipt Date: 20121115
  Transmission Date: 20130627
  Serious: Yes (Hospitalization)
  Sender: FDA-Public Use
  Company Number: US-ABBOTT-12P-163-1003810-00

PATIENT
  Age: 80 None
  Sex: Female

DRUGS (1)
  1. HUMIRA [Suspect]
     Dates: start: 20120801

REACTIONS (9)
  - Hospitalisation [Unknown]
  - Asthenia [Not Recovered/Not Resolved]
  - Burning sensation [Unknown]
  - Gait disturbance [Unknown]
  - Pyrexia [Not Recovered/Not Resolved]
  - Enterocutaneous fistula [Not Recovered/Not Resolved]
  - Enterovesical fistula [Not Recovered/Not Resolved]
  - Localised intraabdominal fluid collection [Not Recovered/Not Resolved]
  - Pneumoperitoneum [Unknown]
